FAERS Safety Report 6996629-7 (Version None)
Quarter: 2010Q3

REPORT INFORMATION
  Report Type: 
  Country: None (occurrence: None)
  Receive Date: 20100918
  Receipt Date: 20090526
  Transmission Date: 20110219
  Serious: No
  Sender: FDA-Public Use
  Company Number: US-WYE-H09489209

PATIENT
  Age: 43 Year
  Sex: Male

DRUGS (3)
  1. EFFEXOR XR [Suspect]
     Indication: DEPRESSION
     Dosage: UNKNOWN
     Route: 048
     Dates: start: 20070101, end: 20090101
  2. EFFEXOR XR [Suspect]
     Dosage: UNKNOWN DOSE INCREASE
     Route: 048
     Dates: start: 20090101, end: 20090501
  3. EFFEXOR XR [Suspect]
     Dosage: UNKNOWN REDUCED DOSE
     Route: 048
     Dates: start: 20090501

REACTIONS (8)
  - ABNORMAL BEHAVIOUR [None]
  - DRUG WITHDRAWAL SYNDROME [None]
  - MALAISE [None]
  - MANIA [None]
  - MIDDLE INSOMNIA [None]
  - PERSONALITY CHANGE [None]
  - POOR QUALITY SLEEP [None]
  - TACHYPHRENIA [None]
